FAERS Safety Report 25665339 (Version 1)
Quarter: 2025Q3

REPORT INFORMATION
  Report Type: Spontaneous
  Country: AU (occurrence: AU)
  Receive Date: 20250811
  Receipt Date: 20250811
  Transmission Date: 20251020
  Serious: Yes (Hospitalization, Other)
  Sender: DR REDDYS
  Company Number: AU-AUS-AUS/2025/08/012049

PATIENT
  Age: 7 Decade
  Sex: Female

DRUGS (5)
  1. PREGABALIN [Suspect]
     Active Substance: PREGABALIN
     Indication: Product used for unknown indication
  2. AMITRIPTYLINE [Suspect]
     Active Substance: AMITRIPTYLINE
     Indication: Sleep disorder
     Dosage: 25MG PER DAY
  3. SERTRALINE [Suspect]
     Active Substance: SERTRALINE HYDROCHLORIDE
     Indication: Depression
     Dosage: 100MG PER DAY
  4. OXYCODONE [Suspect]
     Active Substance: OXYCODONE
     Indication: Abdominal pain upper
     Route: 048
  5. OXYCODONE [Suspect]
     Active Substance: OXYCODONE
     Dosage: MODIFIED RELEASE 30MG TWO TIMES PER DAY
     Route: 048

REACTIONS (1)
  - Serotonin syndrome [Recovered/Resolved]

NARRATIVE: CASE EVENT DATE: 20241216
